FAERS Safety Report 4629041-6 (Version None)
Quarter: 2005Q2

REPORT INFORMATION
  Report Type: 
  Country: None (occurrence: None)
  Receive Date: 20050404
  Receipt Date: 20050404
  Transmission Date: 20051028
  Serious: No
  Sender: FDA-Public Use
  Company Number: None

PATIENT
  Age: 77 Year
  Sex: Male
  Weight: 88.4514 kg

DRUGS (1)
  1. FLOMAX [Suspect]
     Indication: BENIGN PROSTATIC HYPERPLASIA
     Dosage: 0.4MG1/1DAILYORAL
     Route: 048

REACTIONS (3)
  - IRIS DISORDER [None]
  - PROCEDURAL COMPLICATION [None]
  - PUPIL FIXED [None]
